FAERS Safety Report 16859179 (Version 1)
Quarter: 2019Q3

REPORT INFORMATION
  Report Type: Report from Study
  Country: CA (occurrence: CA)
  Receive Date: 20190926
  Receipt Date: 20190926
  Transmission Date: 20191005
  Serious: Yes (Death)
  Sender: FDA-Public Use
  Company Number: CA-HLSUS-2019-CA-000783

PATIENT
  Age: 74 Year
  Sex: Female

DRUGS (1)
  1. CLOZARIL [Suspect]
     Active Substance: CLOZAPINE
     Route: 048
     Dates: start: 20121018, end: 20190915

REACTIONS (3)
  - Neutropenia [Unknown]
  - Death [Fatal]
  - Leukopenia [Unknown]

NARRATIVE: CASE EVENT DATE: 20190718
